FAERS Safety Report 24093565 (Version 2)
Quarter: 2024Q3

REPORT INFORMATION
  Report Type: Spontaneous
  Country: US (occurrence: US)
  Receive Date: 20240715
  Receipt Date: 20240806
  Transmission Date: 20241017
  Serious: No
  Sender: BIOMARIN
  Company Number: US-BIOMARINAP-US-2024-159059

PATIENT

DRUGS (1)
  1. VIMIZIM [Suspect]
     Active Substance: ELOSULFASE ALFA
     Indication: Mucopolysaccharidosis IV
     Dosage: 55 MILLIGRAM, QW
     Route: 042
     Dates: start: 20140418

REACTIONS (6)
  - Viral upper respiratory tract infection [Recovering/Resolving]
  - Respiratory symptom [Recovering/Resolving]
  - Pain [Recovering/Resolving]
  - Rhinorrhoea [Recovering/Resolving]
  - Increased upper airway secretion [Recovering/Resolving]
  - Lacrimation increased [Recovering/Resolving]

NARRATIVE: CASE EVENT DATE: 20240707
